FAERS Safety Report 9806077 (Version 1)
Quarter: 2014Q1

REPORT INFORMATION
  Report Type: Spontaneous
  Country: US (occurrence: US)
  Receive Date: 20140109
  Receipt Date: 20140109
  Transmission Date: 20141002
  Serious: Yes (Hospitalization, Other)
  Sender: FDA-Public Use
  Company Number: US-GILEAD-2014-0091736

PATIENT
  Age: 70 Year
  Sex: Female

DRUGS (10)
  1. LETAIRIS [Suspect]
     Indication: PRODUCT USED FOR UNKNOWN INDICATION
     Dosage: 10 MG, QD
     Route: 048
     Dates: start: 20120120
  2. CALCIUM [Concomitant]
  3. EVISTA [Concomitant]
  4. CENTRUM SILVER WITH LYCOPENE [Concomitant]
  5. KLOR-CON [Concomitant]
  6. LISINOPRIL [Concomitant]
  7. CLONIDINE [Concomitant]
  8. LOPRESSOR [Concomitant]
  9. TEKTURNA [Concomitant]
  10. BUMETANIDE [Concomitant]

REACTIONS (1)
  - Femur fracture [Not Recovered/Not Resolved]
